FAERS Safety Report 25367958 (Version 1)
Quarter: 2025Q2

REPORT INFORMATION
  Report Type: Spontaneous
  Country: US (occurrence: US)
  Receive Date: 20250528
  Receipt Date: 20250528
  Transmission Date: 20250716
  Serious: Yes (Other)
  Sender: ELI LILLY AND COMPANY
  Company Number: US-ELI_LILLY_AND_COMPANY-US202505021331

PATIENT
  Age: 38 Year
  Sex: Female

DRUGS (1)
  1. ERBITUX [Suspect]
     Active Substance: CETUXIMAB
     Indication: Squamous cell carcinoma of skin
     Route: 065
     Dates: start: 20250522

REACTIONS (4)
  - Malignant neoplasm progression [Unknown]
  - Hypercalcaemia [Unknown]
  - Hypertension [Unknown]
  - Hypersensitivity [Unknown]
